FAERS Safety Report 11679973 (Version 2)
Quarter: 2015Q4

REPORT INFORMATION
  Report Type: Spontaneous
  Country: US (occurrence: US)
  Receive Date: 20151027
  Receipt Date: 20151104
  Transmission Date: 20160304
  Serious: No
  Sender: FDA-Public Use
  Company Number: US-ELI_LILLY_AND_COMPANY-US200912001765

PATIENT
  Age: 70 Year
  Sex: Female

DRUGS (3)
  1. FORTEO [Suspect]
     Active Substance: TERIPARATIDE
     Dosage: 20 UG, QD
  2. FORTEO [Suspect]
     Active Substance: TERIPARATIDE
     Indication: OSTEOPOROSIS
     Dosage: 20 UG, QD
     Route: 065
  3. FORTEO [Suspect]
     Active Substance: TERIPARATIDE
     Dosage: 20 UG, QD
     Route: 065

REACTIONS (12)
  - Aortic calcification [Unknown]
  - Muscle spasms [Recovered/Resolved]
  - Body height decreased [Unknown]
  - Pain in extremity [Unknown]
  - Dysphonia [Unknown]
  - Injection site bruising [Recovering/Resolving]
  - Gait disturbance [Unknown]
  - Heart valve calcification [Unknown]
  - Muscle spasms [Unknown]
  - Hunger [Unknown]
  - Peripheral swelling [Unknown]
  - Nasopharyngitis [Unknown]

NARRATIVE: CASE EVENT DATE: 20091206
